FAERS Safety Report 9717990 (Version 1)
Quarter: 2013Q4

REPORT INFORMATION
  Report Type: Spontaneous
  Country: CA (occurrence: CA)
  Receive Date: 20131127
  Receipt Date: 20131127
  Transmission Date: 20140711
  Serious: Yes (Other)
  Sender: FDA-Public Use
  Company Number: CA-SPECTRUM PHARMACEUTICALS, INC.-13-Z-CA-00314

PATIENT
  Sex: 0

DRUGS (2)
  1. ZEVALIN [Suspect]
     Indication: FOLLICLE CENTRE LYMPHOMA, FOLLICULAR GRADE I, II, III
     Dosage: UNK, UNKNOWN
     Route: 042
  2. RITUXIMAB [Suspect]
     Indication: FOLLICLE CENTRE LYMPHOMA, FOLLICULAR GRADE I, II, III
     Dosage: UNK, UNKNOWN
     Route: 065

REACTIONS (10)
  - Cerebrovascular disorder [Unknown]
  - Engraftment syndrome [Unknown]
  - Herpes zoster [Unknown]
  - Clostridium difficile colitis [Unknown]
  - Pneumocystis jirovecii pneumonia [Unknown]
  - Pneumonia bacterial [Unknown]
  - Guillain-Barre syndrome [Unknown]
  - Thrombocytopenic purpura [Unknown]
  - Neutropenia [Unknown]
  - Hypogammaglobulinaemia [Unknown]
